FAERS Safety Report 24468223 (Version 1)
Quarter: 2024Q4

REPORT INFORMATION
  Report Type: Spontaneous
  Country: IN (occurrence: None)
  Receive Date: 20241018
  Receipt Date: 20241018
  Transmission Date: 20250115
  Serious: Yes (Hospitalization, Other)
  Sender: SUPERNUS PHARMACEUTICALS, INC.
  Company Number: IN-ARIS GLOBAL-SUP202410-003762

PATIENT
  Sex: Male

DRUGS (1)
  1. TOPIRAMATE [Suspect]
     Active Substance: TOPIRAMATE
     Indication: Alcoholic seizure
     Dosage: NOT PROVIDED

REACTIONS (1)
  - Eosinophilic pneumonia acute [Recovering/Resolving]
